FAERS Safety Report 18569649 (Version 2)
Quarter: 2020Q4

REPORT INFORMATION
  Report Type: Spontaneous
  Country: FR (occurrence: FR)
  Receive Date: 20201202
  Receipt Date: 20201210
  Transmission Date: 20210114
  Serious: Yes (Congenital Anomaly)
  Sender: FDA-Public Use
  Company Number: FR-PFIZER INC-2020468633

PATIENT
  Sex: Female

DRUGS (1)
  1. SERTRALINE HCL [Suspect]
     Active Substance: SERTRALINE HYDROCHLORIDE
     Indication: DEPRESSION
     Dosage: 50 MG, 1X/DAY
     Route: 064
     Dates: end: 20200402

REACTIONS (2)
  - Maternal exposure during pregnancy [Not Recovered/Not Resolved]
  - Fallot^s tetralogy [Not Recovered/Not Resolved]

NARRATIVE: CASE EVENT DATE: 20200402
